FAERS Safety Report 8504246-2 (Version None)
Quarter: 2012Q2

REPORT INFORMATION
  Report Type: 
  Country: None (occurrence: None)
  Receive Date: 20120405
  Receipt Date: 20110121
  Transmission Date: 20120825
  Serious: Yes (Hospitalization, Other)
  Sender: FDA-Public Use
  Company Number: PHHY2010US72298

PATIENT
  Age: 80 Year
  Sex: Female

DRUGS (7)
  1. MULTIVITAMIN [Concomitant]
  2. RECLAST [Suspect]
     Dosage: INFUSION
     Dates: start: 20100917
  3. WARFARIN SODIUM [Concomitant]
  4. NADOLOL [Concomitant]
  5. CALCIUM CARBONATE [Concomitant]
  6. FLECAINIDE ACETATE [Concomitant]
  7. LEVOXYL [Concomitant]

REACTIONS (2)
  - ARTHRITIS [None]
  - INFLUENZA LIKE ILLNESS [None]
